FAERS Safety Report 23336573 (Version 1)
Quarter: 2023Q4

REPORT INFORMATION
  Report Type: Report from Study
  Country: US (occurrence: US)
  Receive Date: 20231226
  Receipt Date: 20231226
  Transmission Date: 20240110
  Serious: Yes (Death, Other)
  Sender: FDA-Public Use
  Company Number: US-ACADIA PHARMACEUTICALS INC.-ACA-2023-PIM-005622

PATIENT
  Age: 84 Year
  Sex: Female

DRUGS (22)
  1. NUPLAZID [Suspect]
     Active Substance: PIMAVANSERIN TARTRATE
     Indication: Parkinson^s disease
     Dosage: 34 MILLIGRAM, QD
     Route: 048
     Dates: start: 20231109, end: 20231129
  2. AZITHROMYCIN [Concomitant]
     Active Substance: AZITHROMYCIN
  3. CARBIDOPA\LEVODOPA [Concomitant]
     Active Substance: CARBIDOPA\LEVODOPA
  4. COMIRNATY (TOZINAMERAN) [Concomitant]
     Active Substance: TOZINAMERAN
     Dosage: UNK
  5. DONEPEZIL [Concomitant]
     Active Substance: DONEPEZIL
  6. DOXYCYCLINE [Concomitant]
     Active Substance: DOXYCYCLINE
  7. ELIQUIS [Concomitant]
     Active Substance: APIXABAN
  8. FELODIPINE [Concomitant]
     Active Substance: FELODIPINE
  9. FLECAINIDE [Concomitant]
     Active Substance: FLECAINIDE
  10. KETOCONAZOLE [Concomitant]
     Active Substance: KETOCONAZOLE
  11. LEVALBUTEROL [Concomitant]
     Active Substance: LEVALBUTEROL
  12. MEMANTINE [Concomitant]
     Active Substance: MEMANTINE
  13. PANTOPRAZOLE [Concomitant]
     Active Substance: PANTOPRAZOLE
  14. PREDNISONE [Concomitant]
     Active Substance: PREDNISONE
  15. FLUZONE [Concomitant]
     Active Substance: INFLUENZA A VIRUS A/CALIFORNIA/7/2009 X-179A (H1N1) ANTIGEN (FORMALDEHYDE INACTIVATED)\INFLUENZA A V
  16. SERTRALINE [Concomitant]
     Active Substance: SERTRALINE HYDROCHLORIDE
  17. SIMVASTATIN [Concomitant]
     Active Substance: SIMVASTATIN
  18. TRAZODONE [Concomitant]
     Active Substance: TRAZODONE HYDROCHLORIDE
  19. BRIMONIDINE [Concomitant]
     Active Substance: BRIMONIDINE TARTRATE
     Dosage: 0.15 PERCET OPTH SOL 15 ML
     Route: 047
  20. BRINZOLAMIDE [Concomitant]
     Active Substance: BRINZOLAMIDE
     Dosage: 1 PERCENT OPTH SUSP 10 ML
     Route: 047
  21. VITAMIN D3 [Concomitant]
     Active Substance: CHOLECALCIFEROL
     Dosage: 1000 UNIT
  22. Arexvy vaccine [Concomitant]

REACTIONS (1)
  - Death [Recovered/Resolved]

NARRATIVE: CASE EVENT DATE: 20231129
